FAERS Safety Report 15170165 (Version 4)
Quarter: 2019Q4

REPORT INFORMATION
  Report Type: Spontaneous
  Country: US (occurrence: US)
  Receive Date: 20180720
  Receipt Date: 20191004
  Transmission Date: 20200122
  Serious: No
  Sender: FDA-Public Use
  Company Number: US-BIOGEN-2018BI00610068

PATIENT
  Age: 42 Year
  Sex: Female

DRUGS (1)
  1. AVONEX [Suspect]
     Active Substance: INTERFERON BETA-1A
     Indication: MULTIPLE SCLEROSIS
     Route: 050
     Dates: start: 20180628

REACTIONS (3)
  - Fatigue [Unknown]
  - Memory impairment [Not Recovered/Not Resolved]
  - Agraphia [Not Recovered/Not Resolved]

NARRATIVE: CASE EVENT DATE: 20190909
